FAERS Safety Report 4880087-2 (Version None)
Quarter: 2006Q1

REPORT INFORMATION
  Report Type: 
  Country: None (occurrence: None)
  Receive Date: 20060113
  Receipt Date: 20060103
  Transmission Date: 20060701
  Serious: Yes (Other)
  Sender: FDA-Public Use
  Company Number: CA-BRISTOL-MYERS SQUIBB COMPANY-13234190

PATIENT
  Age: 81 Year
  Sex: Female

DRUGS (3)
  1. METHOTREXATE [Suspect]
     Indication: TEMPORAL ARTERITIS
  2. PREDNISONE [Concomitant]
     Indication: TEMPORAL ARTERITIS
  3. FOLIC ACID [Concomitant]

REACTIONS (2)
  - LYMPHOMA [None]
  - TREATMENT RELATED SECONDARY MALIGNANCY [None]
